FAERS Safety Report 7262693-3 (Version None)
Quarter: 2011Q1

REPORT INFORMATION
  Report Type: 
  Country: None (occurrence: None)
  Receive Date: 20110130
  Receipt Date: 20101018
  Transmission Date: 20110831
  Serious: No
  Sender: FDA-Public Use
  Company Number: US-ABBOTT-10P-163-0673705-00

PATIENT
  Sex: Male
  Weight: 96.248 kg

DRUGS (10)
  1. PRAVASTATIN [Concomitant]
     Indication: BLOOD CHOLESTEROL INCREASED
     Route: 048
  2. LORAZEPAM [Concomitant]
     Indication: INSOMNIA
     Dosage: SPARINGLY USED AS NEEDED
     Route: 048
  3. HUMIRA [Suspect]
     Route: 058
     Dates: start: 20100824
  4. HUMIRA [Suspect]
     Indication: RHEUMATOID ARTHRITIS
     Route: 058
     Dates: start: 20100101, end: 20100824
  5. LORAZEPAM [Concomitant]
     Indication: ANXIETY
  6. ASPIRIN [Concomitant]
     Indication: CARDIAC DISORDER
     Route: 048
  7. ENBREL [Concomitant]
     Indication: PRODUCT USED FOR UNKNOWN INDICATION
  8. LISINOPRIL [Concomitant]
     Indication: HYPERTENSION
     Route: 048
  9. METOPROLOL [Concomitant]
     Indication: BLOOD PRESSURE
     Route: 048
  10. ZETIA [Concomitant]
     Indication: BLOOD CHOLESTEROL INCREASED
     Route: 048

REACTIONS (3)
  - DRUG INEFFECTIVE [None]
  - OEDEMA PERIPHERAL [None]
  - MUSCULOSKELETAL STIFFNESS [None]
